FAERS Safety Report 15879033 (Version 1)
Quarter: 2019Q1

REPORT INFORMATION
  Report Type: Spontaneous
  Country: US (occurrence: US)
  Receive Date: 20190125
  Receipt Date: 20190125
  Transmission Date: 20190417
  Serious: Yes (Other)
  Sender: FDA-Public Use
  Company Number: None

PATIENT
  Age: 7 Year
  Sex: Female
  Weight: 28.12 kg

DRUGS (4)
  1. GENERIC FOR ABILIFY [Suspect]
     Active Substance: ARIPIPRAZOLE
     Indication: AFFECTIVE DISORDER
     Dates: start: 20190117, end: 20190117
  2. VYVANSE [Concomitant]
     Active Substance: LISDEXAMFETAMINE DIMESYLATE
  3. MELATONIN [Concomitant]
     Active Substance: MELATONIN
  4. MULTI-VITAMIN GUMMIES [Concomitant]

REACTIONS (6)
  - Balance disorder [None]
  - Feeling abnormal [None]
  - Drooling [None]
  - Tremor [None]
  - Dysarthria [None]
  - Dizziness [None]

NARRATIVE: CASE EVENT DATE: 20190122
